FAERS Safety Report 4702348-X (Version None)
Quarter: 2005Q2

REPORT INFORMATION
  Report Type: 
  Country: None (occurrence: None)
  Receive Date: 20050629
  Receipt Date: 20040209
  Transmission Date: 20051028
  Serious: No
  Sender: FDA-Public Use
  Company Number: US-GLAXOSMITHKLINE-A0497221A

PATIENT
  Sex: Female

DRUGS (2)
  1. VENTOLIN [Suspect]
     Indication: ILL-DEFINED DISORDER
     Route: 055
  2. ALBUTEROL [Concomitant]

REACTIONS (3)
  - HEADACHE [None]
  - TREMOR [None]
  - WHEEZING [None]
